FAERS Safety Report 9381805 (Version 1)
Quarter: 2013Q3

REPORT INFORMATION
  Report Type: Spontaneous
  Country: US (occurrence: US)
  Receive Date: 20130703
  Receipt Date: 20130703
  Transmission Date: 20140515
  Serious: No
  Sender: FDA-Public Use
  Company Number: US-009507513-1307USA000950

PATIENT
  Age: 44 Year
  Sex: Female

DRUGS (1)
  1. NUVARING [Suspect]
     Dosage: FREQUENCY: 3 WEEKS IN, 1 WEEK OUT
     Route: 067
     Dates: start: 20130627

REACTIONS (1)
  - Inappropriate schedule of drug administration [Unknown]
